FAERS Safety Report 4667546-2 (Version None)
Quarter: 2005Q2

REPORT INFORMATION
  Report Type: 
  Country: None (occurrence: None)
  Receive Date: 20050520
  Receipt Date: 20050509
  Transmission Date: 20051028
  Serious: Yes (Hospitalization)
  Sender: FDA-Public Use
  Company Number: US-JNJFOC-20050502792

PATIENT
  Sex: Female

DRUGS (2)
  1. DURAGESIC-100 [Suspect]
     Route: 062
  2. EFFEXOR XR [Concomitant]

REACTIONS (2)
  - PAIN [None]
  - PHARMACEUTICAL PRODUCT COMPLAINT [None]
